FAERS Safety Report 6805648-2 (Version None)
Quarter: 2010Q2

REPORT INFORMATION
  Report Type: 
  Country: None (occurrence: None)
  Receive Date: 20100628
  Receipt Date: 20080128
  Transmission Date: 20101027
  Serious: No
  Sender: FDA-Public Use
  Company Number: US-PFIZER INC-2008009396

PATIENT
  Sex: Female
  Weight: 71.94 kg

DRUGS (9)
  1. GEODON [Suspect]
     Indication: BIPOLAR DISORDER
     Dates: start: 20060501
  2. GEODON [Suspect]
     Indication: PSYCHOTIC DISORDER
  3. DEPAKOTE [Suspect]
     Indication: BIPOLAR DISORDER
     Dates: start: 20060501
  4. DEPAKOTE [Suspect]
     Indication: PSYCHOTIC DISORDER
  5. PAROXETINE [Concomitant]
  6. MULTI-VITAMINS [Concomitant]
  7. LYSINE [Concomitant]
  8. VITAMIN E [Concomitant]
  9. CLONAZEPAM [Concomitant]

REACTIONS (1)
  - VISION BLURRED [None]
